FAERS Safety Report 5103540-5 (Version None)
Quarter: 2006Q3

REPORT INFORMATION
  Report Type: 
  Country: None (occurrence: None)
  Receive Date: 20060913
  Receipt Date: 20060707
  Transmission Date: 20061208
  Serious: Yes (Other)
  Sender: FDA-Public Use
  Company Number: US-AVENTIS-200616162US

PATIENT
  Sex: Female

DRUGS (2)
  1. DDAVP [Suspect]
     Dosage: DOSE: 0.3 MCG/KG
     Route: 051
  2. ALBUTEROL [Concomitant]
     Dosage: DOSE: UNK

REACTIONS (2)
  - ASTHMA [None]
  - DYSPNOEA [None]
